FAERS Safety Report 20506538 (Version 42)
Quarter: 2025Q4

REPORT INFORMATION
  Report Type: Report from Study
  Country: US (occurrence: US)
  Receive Date: 20220223
  Receipt Date: 20251223
  Transmission Date: 20260117
  Serious: Yes (Other)
  Sender: TAKEDA
  Company Number: US-TAKEDA-2021TUS020198

PATIENT
  Age: 62 Year
  Sex: Female
  Weight: 112 kg

DRUGS (66)
  1. HUMAN IMMUNOGLOBULIN G [Suspect]
     Active Substance: HUMAN IMMUNOGLOBULIN G
     Indication: Immunodeficiency common variable
     Dosage: 40 GRAM, Q4WEEKS
     Dates: start: 20210409
  2. HUMAN IMMUNOGLOBULIN G [Suspect]
     Active Substance: HUMAN IMMUNOGLOBULIN G
     Dosage: 45 GRAM, Q4WEEKS
  3. HUMAN IMMUNOGLOBULIN G [Suspect]
     Active Substance: HUMAN IMMUNOGLOBULIN G
     Dosage: 45 GRAM, Q4WEEKS
     Dates: start: 20210930
  4. HUMAN IMMUNOGLOBULIN G [Suspect]
     Active Substance: HUMAN IMMUNOGLOBULIN G
     Dosage: 45 GRAM, Q4WEEKS
  5. HUMAN IMMUNOGLOBULIN G [Suspect]
     Active Substance: HUMAN IMMUNOGLOBULIN G
     Dosage: 65 GRAM, Q4WEEKS
  6. HUMAN IMMUNOGLOBULIN G [Suspect]
     Active Substance: HUMAN IMMUNOGLOBULIN G
     Dosage: 55 GRAM, Q4WEEKS
  7. HUMAN IMMUNOGLOBULIN G [Suspect]
     Active Substance: HUMAN IMMUNOGLOBULIN G
     Dosage: 35 GRAM, Q2WEEKS
  8. HUMAN IMMUNOGLOBULIN G [Suspect]
     Active Substance: HUMAN IMMUNOGLOBULIN G
     Dosage: 40 GRAM, Q2WEEKS
  9. ACETAMINOPHEN [Concomitant]
     Active Substance: ACETAMINOPHEN
     Dosage: UNK
  10. EPINEPHRINE [Concomitant]
     Active Substance: EPINEPHRINE
     Dosage: UNK
  11. DICYCLOMINE HYDROCHLORIDE [Concomitant]
     Active Substance: DICYCLOMINE HYDROCHLORIDE
     Dosage: UNK
  12. CRESTOR [Concomitant]
     Active Substance: ROSUVASTATIN CALCIUM
     Dosage: UNK
  13. NASACORT [Concomitant]
     Active Substance: TRIAMCINOLONE ACETONIDE
     Dosage: UNK
  14. FOLIC ACID [Concomitant]
     Active Substance: FOLIC ACID
     Dosage: UNK
  15. PREDNISONE [Concomitant]
     Active Substance: PREDNISONE
     Dosage: UNK
  16. PILOCARPINE HYDROCHLORIDE [Concomitant]
     Active Substance: PILOCARPINE HYDROCHLORIDE
     Dosage: UNK
  17. ZEPBOUND [Concomitant]
     Active Substance: TIRZEPATIDE
     Dosage: UNK
  18. OFLOXACIN [Concomitant]
     Active Substance: OFLOXACIN
     Dosage: UNK
  19. FIORICET [Concomitant]
     Active Substance: ACETAMINOPHEN\BUTALBITAL\CAFFEINE
     Dosage: UNK
  20. SINGULAIR [Concomitant]
     Active Substance: MONTELUKAST SODIUM
     Dosage: UNK
  21. ADVAIR HFA [Concomitant]
     Active Substance: FLUTICASONE PROPIONATE\SALMETEROL XINAFOATE
     Dosage: UNK
  22. SODIUM CHLORIDE [Concomitant]
     Active Substance: SODIUM CHLORIDE
     Dosage: UNK
  23. PAXLOVID [Concomitant]
     Active Substance: NIRMATRELVIR\RITONAVIR
     Dosage: UNK
  24. LEVOTHYROXINE [Concomitant]
     Active Substance: LEVOTHYROXINE
     Dosage: UNK
  25. LASIX [Concomitant]
     Active Substance: FUROSEMIDE
     Dosage: UNK
  26. ALBUTEROL SULFATE [Concomitant]
     Active Substance: ALBUTEROL SULFATE
     Dosage: UNK
  27. LEXAPRO [Concomitant]
     Active Substance: ESCITALOPRAM OXALATE
     Dosage: UNK
  28. PROPAFENONE HCL [Concomitant]
     Active Substance: PROPAFENONE HYDROCHLORIDE
     Dosage: UNK
  29. ELIQUIS [Concomitant]
     Active Substance: APIXABAN
     Dosage: UNK
  30. VITAMIN D3 [Concomitant]
     Active Substance: CHOLECALCIFEROL
     Dosage: UNK
  31. LIDOCAINE [Concomitant]
     Active Substance: LIDOCAINE
     Dosage: UNK
  32. BENZONATATE [Concomitant]
     Active Substance: BENZONATATE
     Dosage: UNK
  33. COSENTYX [Concomitant]
     Active Substance: SECUKINUMAB
     Dosage: UNK
  34. NURTEC ODT [Concomitant]
     Active Substance: RIMEGEPANT SULFATE
     Dosage: UNK
  35. METOPROLOL SUCCINATE [Concomitant]
     Active Substance: METOPROLOL SUCCINATE
     Dosage: UNK
  36. PROMETHAZINE [Concomitant]
     Active Substance: PROMETHAZINE HYDROCHLORIDE
     Dosage: UNK
  37. OXYGEN [Concomitant]
     Active Substance: OXYGEN
     Dosage: UNK
  38. SPIRIVA RESPIMAT [Concomitant]
     Active Substance: TIOTROPIUM BROMIDE
     Dosage: UNK
  39. DIPHENHYDRAMINE HYDROCHLORIDE [Concomitant]
     Active Substance: DIPHENHYDRAMINE HYDROCHLORIDE
     Dosage: UNK
  40. MINERALS\VITAMINS [Concomitant]
     Active Substance: MINERALS\VITAMINS
     Dosage: UNK
  41. OXYCODONE [Concomitant]
     Active Substance: OXYCODONE
     Dosage: UNK
  42. TOPIRAMATE [Concomitant]
     Active Substance: TOPIRAMATE
     Dosage: UNK
  43. DEXILANT [Concomitant]
     Active Substance: DEXLANSOPRAZOLE
     Dosage: UNK
  44. METHOTREXATE [Concomitant]
     Active Substance: METHOTREXATE
     Dosage: UNK
  45. DIPHENHYDRAMINE [Concomitant]
     Active Substance: DIPHENHYDRAMINE
     Dosage: UNK
  46. ALBUTEROL [Concomitant]
     Active Substance: ALBUTEROL
     Dosage: UNK
  47. DICYCLOMINE [Concomitant]
     Active Substance: DICYCLOMINE HYDROCHLORIDE
     Dosage: UNK
  48. SYNTHROID [Concomitant]
     Active Substance: LEVOTHYROXINE SODIUM
     Dosage: UNK
  49. IMURAN [Concomitant]
     Active Substance: AZATHIOPRINE
     Dosage: UNK
  50. MINERALS\VITAMINS [Concomitant]
     Active Substance: MINERALS\VITAMINS
     Dosage: UNK
  51. CLINDAMYCIN HYDROCHLORIDE [Concomitant]
     Active Substance: CLINDAMYCIN HYDROCHLORIDE
     Dosage: UNK
  52. CYMBALTA [Concomitant]
     Active Substance: DULOXETINE HYDROCHLORIDE
     Dosage: UNK
  53. HYDROXYZINE PAMOATE [Concomitant]
     Active Substance: HYDROXYZINE PAMOATE
     Dosage: UNK
  54. PERCOCET [Concomitant]
     Active Substance: ACETAMINOPHEN\OXYCODONE HYDROCHLORIDE
     Dosage: UNK
  55. PROPAFENONE [Concomitant]
     Active Substance: PROPAFENONE
     Dosage: UNK
  56. AZITHROMYCIN [Concomitant]
     Active Substance: AZITHROMYCIN
     Dosage: UNK
  57. METOPROLOL [Concomitant]
     Active Substance: METOPROLOL
     Dosage: UNK
  58. ACIDOPHILUS [Concomitant]
     Active Substance: LACTOBACILLUS ACIDOPHILUS
     Dosage: UNK
  59. SULFASALAZINE [Concomitant]
     Active Substance: SULFASALAZINE
     Dosage: UNK
  60. CEPHALEXIN [Concomitant]
     Active Substance: CEPHALEXIN
     Dosage: UNK
  61. HYDROCODONE [Concomitant]
     Active Substance: HYDROCODONE
     Dosage: UNK
  62. OXYCODONE AND ACETAMINOPHEN [Concomitant]
     Active Substance: ACETAMINOPHEN\OXYCODONE HYDROCHLORIDE
     Dosage: UNK
  63. PROMETHAZINE DM [Concomitant]
     Active Substance: DEXTROMETHORPHAN HYDROBROMIDE\PROMETHAZINE HYDROCHLORIDE
     Dosage: UNK
  64. RIZATRIPTAN [Concomitant]
     Active Substance: RIZATRIPTAN
     Dosage: UNK
  65. CYCLOBENZAPRINE HYDROCHLORIDE [Concomitant]
     Active Substance: CYCLOBENZAPRINE HYDROCHLORIDE
     Dosage: UNK
  66. ACETAMINOPHEN AND CODEINE [Concomitant]
     Active Substance: ACETAMINOPHEN\CODEINE PHOSPHATE
     Dosage: UNK

REACTIONS (50)
  - Hepatic fibrosis [Unknown]
  - Mastoiditis [Unknown]
  - Lower respiratory tract infection [Unknown]
  - Cataract [Unknown]
  - Tooth infection [Unknown]
  - Oxygen saturation abnormal [Unknown]
  - Multiple allergies [Unknown]
  - Illness [Unknown]
  - Gingivitis [Unknown]
  - Urinary tract infection [Unknown]
  - Neck pain [Unknown]
  - COVID-19 [Unknown]
  - Labyrinthitis [Unknown]
  - Fungal infection [Unknown]
  - Nasal discomfort [Recovering/Resolving]
  - Ear infection [Not Recovered/Not Resolved]
  - Infection [Unknown]
  - Weight increased [Unknown]
  - Paranasal sinus hypersecretion [Unknown]
  - Sinus congestion [Unknown]
  - Nasopharyngitis [Unknown]
  - Eye disorder [Unknown]
  - Meibomian gland dysfunction [Unknown]
  - Productive cough [Unknown]
  - Fall [Unknown]
  - Limb injury [Unknown]
  - Joint injury [Unknown]
  - Product dose omission issue [Unknown]
  - Influenza [Unknown]
  - Sinusitis [Unknown]
  - Ear pain [Unknown]
  - Pain [Unknown]
  - Vertigo [Unknown]
  - Body temperature increased [Unknown]
  - Lymphadenopathy [Unknown]
  - Oropharyngeal pain [Recovering/Resolving]
  - Malaise [Unknown]
  - Cough [Recovering/Resolving]
  - Chest discomfort [Recovering/Resolving]
  - Dyspnoea [Unknown]
  - Pain in extremity [Unknown]
  - Wheezing [Unknown]
  - Pyrexia [Recovered/Resolved]
  - Vomiting [Unknown]
  - Fatigue [Recovering/Resolving]
  - Headache [Unknown]
  - Diarrhoea [Unknown]
  - Migraine [Unknown]
  - Eye pain [Unknown]
  - Rhinorrhoea [Unknown]

NARRATIVE: CASE EVENT DATE: 20220113
